FAERS Safety Report 25912064 (Version 1)
Quarter: 2025Q4

REPORT INFORMATION
  Report Type: Spontaneous
  Country: US (occurrence: US)
  Receive Date: 20251013
  Receipt Date: 20251013
  Transmission Date: 20260118
  Serious: No
  Sender: RANBAXY
  Company Number: US-SUN PHARMACEUTICAL INDUSTRIES LTD-2025R1-518852

PATIENT
  Sex: Female

DRUGS (2)
  1. WINLEVI [Suspect]
     Active Substance: CLASCOTERONE
     Indication: Product used for unknown indication
     Dosage: UNK UNK, WEEKLY
     Route: 065
  2. WINLEVI [Suspect]
     Active Substance: CLASCOTERONE
     Dosage: TO 5 TIMES PER WEEK
     Route: 065

REACTIONS (1)
  - Fatigue [Recovered/Resolved]
